FAERS Safety Report 15017966 (Version 1)
Quarter: 2018Q2

REPORT INFORMATION
  Report Type: Spontaneous
  Country: GR (occurrence: GR)
  Receive Date: 20180615
  Receipt Date: 20180615
  Transmission Date: 20180711
  Serious: Yes (Hospitalization)
  Sender: FDA-Public Use
  Company Number: GR-MYLANLABS-2018M1039594

PATIENT
  Age: 72 Year

DRUGS (5)
  1. AMILORIDE W/FUROSEMIDE [Suspect]
     Active Substance: AMILORIDE\FUROSEMIDE
     Indication: CARDIAC FAILURE
     Dosage: 1 DF, BID  (40 MG (FUROSEMIDE)+5 MG (AMILORIDE), BID)
     Route: 065
  2. IRBESARTAN. [Suspect]
     Active Substance: IRBESARTAN
     Indication: CARDIAC FAILURE
     Dosage: 300 MG, QD
     Route: 065
  3. CARVEDILOL. [Suspect]
     Active Substance: CARVEDILOL
     Indication: CARDIAC FAILURE
     Dosage: 6.25 MG, QD
     Route: 065
  4. DICLOFENAC [Suspect]
     Active Substance: DICLOFENAC
     Indication: CARDIAC FAILURE
     Dosage: UNK
     Route: 065
  5. AMLODIPINE AND OLMESARTAN MEDOXOMIL [Suspect]
     Active Substance: AMLODIPINE BESYLATE\OLMESARTAN MEDOXOMIL
     Indication: PRODUCT USED FOR UNKNOWN INDICATION
     Dosage: 2 DF, QD (10 MG AMLODIPINE + 20 MG OLMESARTAN)
     Route: 065

REACTIONS (12)
  - Muscular weakness [Recovered/Resolved]
  - Renal impairment [Unknown]
  - Blood creatinine increased [Unknown]
  - Blood urea increased [Unknown]
  - Hyperkalaemia [Recovered/Resolved]
  - Drug administration error [Unknown]
  - Blood sodium increased [Unknown]
  - Hyponatraemia [Recovered/Resolved]
  - Blood potassium increased [Unknown]
  - Product use issue [Unknown]
  - Electrocardiogram T wave abnormal [Unknown]
  - Orthostatic hypotension [Recovered/Resolved]
